FAERS Safety Report 6804766-2 (Version None)
Quarter: 2010Q2

REPORT INFORMATION
  Report Type: 
  Country: None (occurrence: None)
  Receive Date: 20100628
  Receipt Date: 20070518
  Transmission Date: 20101027
  Serious: No
  Sender: FDA-Public Use
  Company Number: US-PFIZER INC-2007040878

PATIENT
  Sex: Female
  Weight: 90.909 kg

DRUGS (2)
  1. XALATAN [Suspect]
     Indication: GLAUCOMA
     Route: 031
     Dates: start: 20070501
  2. ANTIHYPERTENSIVES [Concomitant]

REACTIONS (1)
  - EYE IRRITATION [None]
